FAERS Safety Report 11183770 (Version 1)
Quarter: 2015Q2

REPORT INFORMATION
  Report Type: Spontaneous
  Country: US (occurrence: None)
  Receive Date: 20150611
  Receipt Date: 20150611
  Transmission Date: 20150821
  Serious: Yes (Other)
  Sender: FDA-Public Use
  Company Number: None

PATIENT
  Age: 13 Year
  Sex: Male
  Weight: 32.3 kg

DRUGS (1)
  1. JADENU [Suspect]
     Active Substance: DEFERASIROX
     Indication: IRON OVERLOAD
     Dosage: 360 MG ?2T QD ?PO
     Route: 048
     Dates: start: 20120810

REACTIONS (2)
  - Abdominal pain upper [None]
  - Drug dose omission [None]

NARRATIVE: CASE EVENT DATE: 20150609
